FAERS Safety Report 19881135 (Version 1)
Quarter: 2021Q3

REPORT INFORMATION
  Report Type: Spontaneous
  Country: GB (occurrence: GB)
  Receive Date: 20210924
  Receipt Date: 20210924
  Transmission Date: 20211014
  Serious: Yes (Other)
  Sender: FDA-Public Use
  Company Number: GB-ASCEND THERAPEUTICS US, LLC-2118776

PATIENT
  Age: 59 Year
  Sex: Female
  Weight: 57 kg

DRUGS (5)
  1. ESTROGEL [Suspect]
     Active Substance: ESTRADIOL
  2. OESTROGEL(ESTRADIOL) [Suspect]
     Active Substance: ESTRADIOL
     Route: 062
     Dates: start: 2021
  3. UTROGESTAN [Concomitant]
     Active Substance: PROGESTERONE
     Route: 065
  4. ESTROGEL [Suspect]
     Active Substance: ESTRADIOL
     Indication: MENOPAUSE
     Route: 062
     Dates: start: 20210601, end: 2021
  5. OESTROGEL(ESTRADIOL) [Suspect]
     Active Substance: ESTRADIOL
     Route: 062
     Dates: start: 20210601, end: 2021

REACTIONS (3)
  - Intentional product use issue [None]
  - Drug ineffective [Not Recovered/Not Resolved]
  - Product packaging issue [None]

NARRATIVE: CASE EVENT DATE: 2021
